FAERS Safety Report 21666966 (Version 2)
Quarter: 2023Q2

REPORT INFORMATION
  Report Type: Spontaneous
  Country: CA (occurrence: CA)
  Receive Date: 20221201
  Receipt Date: 20230426
  Transmission Date: 20230721
  Serious: Yes (Life-Threatening, Hospitalization, Disabling, Other)
  Sender: FDA-Public Use
  Company Number: CA-CHEPLA-2022011563

PATIENT
  Age: 58 Year
  Sex: Male
  Weight: 116.40 kg

DRUGS (19)
  1. ETOPOSIDE PHOSPHATE [Suspect]
     Active Substance: ETOPOSIDE PHOSPHATE
     Indication: Small cell lung cancer
     Route: 042
     Dates: start: 20220824, end: 20220928
  2. ETOPOSIDE PHOSPHATE [Suspect]
     Active Substance: ETOPOSIDE PHOSPHATE
     Indication: Small cell lung cancer
     Dosage: 240 MG DAILY X 3
     Route: 042
     Dates: start: 20220831, end: 20220902
  3. ETOPOSIDE PHOSPHATE [Suspect]
     Active Substance: ETOPOSIDE PHOSPHATE
     Indication: Small cell lung cancer
     Dosage: 240 MG DAILY X 3
     Route: 042
     Dates: start: 20220928, end: 20220930
  4. ETOPOSIDE PHOSPHATE [Suspect]
     Active Substance: ETOPOSIDE PHOSPHATE
     Indication: Small cell lung cancer
     Dosage: DAYS 1-3 (OF 21-DAY CYCLE)?240 MG
     Route: 042
  5. ETOPOSIDE [Suspect]
     Active Substance: ETOPOSIDE
  6. ATORVASTATIN [Concomitant]
     Active Substance: ATORVASTATIN
  7. VARENICLINE TARTRATE [Concomitant]
     Active Substance: VARENICLINE TARTRATE
  8. VITAMINS [Concomitant]
     Active Substance: VITAMINS
  9. TUMS [Concomitant]
     Active Substance: CALCIUM CARBONATE
  10. DEXAMETHASONE [Concomitant]
     Active Substance: DEXAMETHASONE
     Route: 014
  11. EMEND [Concomitant]
     Active Substance: APREPITANT
  12. ONDANSETRON [Concomitant]
     Active Substance: ONDANSETRON
  13. CISPLATIN [Concomitant]
     Active Substance: CISPLATIN
     Route: 042
  14. DULOXETINE HYDROCHLORIDE [Concomitant]
     Active Substance: DULOXETINE HYDROCHLORIDE
     Dosage: DELAYED RELEASE
     Route: 048
  15. HYDROMORPHONE [Concomitant]
     Active Substance: HYDROMORPHONE
  16. LORAZEPAM [Concomitant]
     Active Substance: LORAZEPAM
  17. OLANZAPINE [Concomitant]
     Active Substance: OLANZAPINE
  18. PANTOPRAZOLE [Concomitant]
     Active Substance: PANTOPRAZOLE
     Route: 042
  19. Polyethylene Glycol 3350 sugar free [Concomitant]
     Route: 048

REACTIONS (1)
  - Peripheral arterial occlusive disease [Recovered/Resolved with Sequelae]
